FAERS Safety Report 7771406-8 (Version None)
Quarter: 2011Q3

REPORT INFORMATION
  Report Type: 
  Country: None (occurrence: None)
  Receive Date: 20110922
  Receipt Date: 20110718
  Transmission Date: 20111222
  Serious: No
  Sender: FDA-Public Use
  Company Number: US-ASTRAZENECA-2009SE30338

PATIENT
  Age: 6550 Day
  Sex: Female
  Weight: 124.7 kg

DRUGS (10)
  1. VISTARIL [Concomitant]
     Dates: start: 20051116
  2. PROTONIX [Concomitant]
     Route: 048
     Dates: start: 20060517
  3. IMITREX [Concomitant]
     Dates: start: 20060830
  4. PROZAC [Concomitant]
     Indication: DEPRESSION
     Dates: start: 20070314
  5. GEODON [Concomitant]
     Dates: start: 20060830
  6. NALTRIXONE HCL [Concomitant]
     Dates: start: 20060830
  7. ABILIFY [Concomitant]
  8. SEROQUEL [Suspect]
     Indication: AFFECTIVE DISORDER
     Dosage: 100-400 MG
     Route: 048
     Dates: start: 20070314
  9. TOPAMAX [Concomitant]
     Indication: AFFECTIVE DISORDER
     Dates: start: 20060830
  10. SEROQUEL [Suspect]
     Indication: SLEEP DISORDER
     Dosage: 100-400 MG
     Route: 048
     Dates: start: 20070314

REACTIONS (5)
  - HEADACHE [None]
  - EMOTIONAL DISORDER [None]
  - TYPE 2 DIABETES MELLITUS [None]
  - BACK PAIN [None]
  - MIGRAINE [None]
